FAERS Safety Report 7893152-2 (Version None)
Quarter: 2011Q4

REPORT INFORMATION
  Report Type: 
  Country: None (occurrence: None)
  Receive Date: 20111104
  Receipt Date: 20111025
  Transmission Date: 20120403
  Serious: Yes (Hospitalization)
  Sender: FDA-Public Use
  Company Number: JP-EISAI INC-E7389-01691-CLI-JP

PATIENT
  Sex: Female
  Weight: 35 kg

DRUGS (11)
  1. DECADRON [Concomitant]
     Indication: PROPHYLAXIS
  2. HALAVEN [Suspect]
     Indication: BREAST CANCER RECURRENT
     Route: 041
     Dates: start: 20110912
  3. OXYCONTIN [Concomitant]
     Indication: CANCER PAIN
     Route: 048
  4. NOVORAPID 70 MIX [Concomitant]
     Indication: DIABETES MELLITUS
  5. LOXONIN [Concomitant]
     Indication: CANCER PAIN
     Route: 048
  6. HALAVEN [Suspect]
     Indication: METASTASES TO LUNG
  7. HALAVEN [Suspect]
     Indication: METASTASES TO BONE
  8. FEMARA [Concomitant]
     Indication: BREAST CANCER RECURRENT
     Dates: start: 20110720
  9. PRIMPERAN TAB [Concomitant]
     Indication: PROPHYLAXIS
     Route: 048
  10. LEVOTHYROXINE SODIUM [Concomitant]
     Indication: HYPOTHYROIDISM
     Route: 048
  11. CARTOL [Concomitant]
     Indication: PROPHYLAXIS
     Route: 048

REACTIONS (1)
  - CELLULITIS [None]
